FAERS Safety Report 8592251-X (Version None)
Quarter: 2012Q3

REPORT INFORMATION
  Report Type: 
  Country: None (occurrence: None)
  Receive Date: 20120814
  Receipt Date: 20120809
  Transmission Date: 20120928
  Serious: Yes (Life-Threatening)
  Sender: FDA-Public Use
  Company Number: AT-PFIZER INC-2012194149

PATIENT
  Age: 70 Year
  Sex: Male
  Weight: 94 kg

DRUGS (7)
  1. IDARUBICIN HCL [Suspect]
     Indication: ACUTE MYELOID LEUKAEMIA
     Dosage: 24 MG, 1X/DAY
     Dates: start: 20120713
  2. ETOPOSIDE [Suspect]
     Indication: ACUTE MYELOID LEUKAEMIA
     Dosage: 205 MG, 1X/DAY
     Dates: start: 20120713
  3. COLIDIMIN [Concomitant]
     Dosage: 600 MG, 1X/DAY
     Route: 042
     Dates: start: 20120720
  4. ATRACURIUM BESYLATE [Suspect]
     Indication: ACUTE MYELOID LEUKAEMIA
     Dosage: 120 MG, 1X/DAY
     Dates: start: 20120718
  5. CYTARABINE [Suspect]
     Indication: ACUTE MYELOID LEUKAEMIA
     Dosage: 205 MG, 1X/DAY
     Dates: start: 20120713
  6. TAZONAM [Concomitant]
     Dosage: 13.5 MG, 1X/DAY
     Route: 042
     Dates: start: 20120718
  7. VFEND [Concomitant]
     Dosage: 800 MG, 1X/DAY
     Route: 048
     Dates: start: 20120720

REACTIONS (1)
  - RESPIRATORY FAILURE [None]
